FAERS Safety Report 18213747 (Version 1)
Quarter: 2020Q3

REPORT INFORMATION
  Report Type: Spontaneous
  Country: US (occurrence: US)
  Receive Date: 20200831
  Receipt Date: 20200831
  Transmission Date: 20201103
  Serious: Yes (Hospitalization)
  Sender: FDA-Public Use
  Company Number: None

PATIENT
  Age: 77 Year
  Sex: Male
  Weight: 83.91 kg

DRUGS (2)
  1. WARFARIN (WARFARIN NA (EXELAN) 5MG TAB) [Suspect]
     Active Substance: WARFARIN SODIUM
     Indication: ATRIAL FIBRILLATION
     Dosage: ?          OTHER FREQUENCY:PM;?
     Route: 048
     Dates: start: 20200220, end: 20200611
  2. ASPIRIN (ASPIRIN 325MG TAB, EC) [Suspect]
     Active Substance: ASPIRIN
     Indication: CEREBROVASCULAR ACCIDENT PROPHYLAXIS
     Route: 048
     Dates: start: 20121212, end: 20200611

REACTIONS (4)
  - Gastric haemorrhage [None]
  - Haemoglobin decreased [None]
  - Haematochezia [None]
  - Asthenia [None]

NARRATIVE: CASE EVENT DATE: 20200611
